FAERS Safety Report 7146361-4 (Version None)
Quarter: 2010Q4

REPORT INFORMATION
  Report Type: 
  Country: None (occurrence: None)
  Receive Date: 20101208
  Receipt Date: 20091116
  Transmission Date: 20110411
  Serious: Yes (Other)
  Sender: FDA-Public Use
  Company Number: US-BRISTOL-MYERS SQUIBB COMPANY-14862916

PATIENT
  Age: 42 Year
  Sex: Female
  Weight: 92 kg

DRUGS (8)
  1. PRAVACHOL [Suspect]
     Indication: BLOOD CHOLESTEROL INCREASED
  2. CINRYZE [Suspect]
     Indication: HEREDITARY ANGIOEDEMA
     Dosage: 1 DF= 1000 UNITS; FORM=INJ
     Dates: start: 20090708
  3. DANAZOL [Concomitant]
     Dates: end: 20090715
  4. ZOVIRAX [Concomitant]
  5. AMBIEN [Concomitant]
  6. PHENAZOPYRIDINE HCL TAB [Concomitant]
  7. FLEXERIL [Concomitant]
  8. TOPROL-XL [Concomitant]

REACTIONS (3)
  - ANGIOEDEMA [None]
  - HEPATIC ENZYME INCREASED [None]
  - RASH [None]
